FAERS Safety Report 20723777 (Version 1)
Quarter: 2022Q2

REPORT INFORMATION
  Report Type: Report from Study
  Country: AU (occurrence: AU)
  Receive Date: 20220419
  Receipt Date: 20220419
  Transmission Date: 20220720
  Serious: Yes (Hospitalization)
  Sender: FDA-Public Use
  Company Number: AU-NOVARTISPH-NVSC2021AU299932

PATIENT
  Sex: Female

DRUGS (4)
  1. COSENTYX [Suspect]
     Active Substance: SECUKINUMAB
     Indication: Psoriatic arthropathy
     Dosage: UNK, QMO
     Route: 058
     Dates: start: 20211003
  2. COSENTYX [Suspect]
     Active Substance: SECUKINUMAB
     Dosage: UNK
     Route: 065
     Dates: start: 20211126
  3. COSENTYX [Suspect]
     Active Substance: SECUKINUMAB
     Dosage: UNK, Q2W (13 FEB)
     Route: 058
  4. COSENTYX [Suspect]
     Active Substance: SECUKINUMAB
     Dosage: UNK, Q2W (FROM MONTHLY TO FORTNIGHTLY INJECTIONS)
     Route: 058

REACTIONS (8)
  - Psoriatic arthropathy [Unknown]
  - Fatigue [Unknown]
  - Influenza like illness [Unknown]
  - Headache [Unknown]
  - Dysphonia [Unknown]
  - Pain in extremity [Unknown]
  - Product use issue [Unknown]
  - Drug ineffective [Unknown]
